FAERS Safety Report 12722710 (Version 2)
Quarter: 2016Q3

REPORT INFORMATION
  Report Type: Spontaneous
  Country: IT (occurrence: IT)
  Receive Date: 20160907
  Receipt Date: 20160913
  Transmission Date: 20161109
  Serious: Yes (Other)
  Sender: FDA-Public Use
  Company Number: IT-GILEAD-2016-0231734

PATIENT
  Age: 58 Year
  Sex: Male
  Weight: 53 kg

DRUGS (1)
  1. EVIPLERA [Suspect]
     Active Substance: EMTRICITABINE\RILPIVIRINE\TENOFOVIR DISOPROXIL FUMARATE
     Indication: HIV INFECTION
     Dosage: 1 DF, QD
     Route: 048
     Dates: start: 20150304

REACTIONS (1)
  - Osteoporosis [Unknown]

NARRATIVE: CASE EVENT DATE: 20160705
